FAERS Safety Report 8053631-4 (Version None)
Quarter: 2012Q1

REPORT INFORMATION
  Report Type: 
  Country: None (occurrence: None)
  Receive Date: 20120118
  Receipt Date: 20120116
  Transmission Date: 20120608
  Serious: Yes (Other)
  Sender: FDA-Public Use
  Company Number: US-BAYER-2011-066591

PATIENT
  Age: 36 Year
  Weight: 67.12 kg

DRUGS (4)
  1. VALTREX [Concomitant]
     Dosage: 500 MG, UNK
  2. ALLEGRA-D 12 HOUR [Concomitant]
     Dosage: UNK UNK, BID
  3. MIRENA [Suspect]
     Indication: CONTRACEPTION
     Dosage: 20 ?G, CONT
     Route: 015
     Dates: start: 20100830, end: 20110501
  4. ANTIBIOTICS [Concomitant]
     Indication: BACTERIAL INFECTION

REACTIONS (10)
  - AMENORRHOEA [None]
  - UTERINE POLYP [None]
  - VAGINAL HAEMORRHAGE [None]
  - DEVICE EXPULSION [None]
  - MENORRHAGIA [None]
  - VAGINAL DISCHARGE [None]
  - ABDOMINAL PAIN [None]
  - VULVOVAGINITIS [None]
  - SUPRAPUBIC PAIN [None]
  - FOREIGN BODY [None]
